FAERS Safety Report 25265530 (Version 1)
Quarter: 2025Q2

REPORT INFORMATION
  Report Type: Spontaneous
  Country: US (occurrence: US)
  Receive Date: 20250502
  Receipt Date: 20250502
  Transmission Date: 20250717
  Serious: No
  Sender: ALEXION PHARMACEUTICALS
  Company Number: US-AstraZeneca-CH-00861692A

PATIENT

DRUGS (1)
  1. BRILINTA [Suspect]
     Active Substance: TICAGRELOR
     Route: 065

REACTIONS (5)
  - Joint stiffness [Unknown]
  - Arthralgia [Unknown]
  - Haemorrhage [Unknown]
  - Contusion [Unknown]
  - Contusion [Unknown]
